FAERS Safety Report 13777517 (Version 1)
Quarter: 2017Q3

REPORT INFORMATION
  Report Type: Report from Study
  Country: None (occurrence: BR)
  Receive Date: 20170721
  Receipt Date: 20170721
  Transmission Date: 20171127
  Serious: Yes (Other)
  Sender: FDA-Public Use
  Company Number: BR-ABBVIE-17K-020-2045034-00

PATIENT
  Age: 53 Year
  Sex: Female
  Weight: 96 kg

DRUGS (2)
  1. HUMIRA [Suspect]
     Active Substance: ADALIMUMAB
     Indication: RHEUMATOID ARTHRITIS
     Route: 058
     Dates: start: 20121219
  2. CALCIUM (NON-ABBVIE) [Concomitant]
     Indication: BONE DISORDER
     Dosage: MAGISTRAL FORMULA
     Route: 048
     Dates: start: 201702

REACTIONS (2)
  - Eye ulcer [Recovered/Resolved]
  - Dry eye [Unknown]

NARRATIVE: CASE EVENT DATE: 201610
